FAERS Safety Report 4661736-0 (Version None)
Quarter: 2005Q2

REPORT INFORMATION
  Report Type: 
  Country: None (occurrence: None)
  Receive Date: 20050513
  Receipt Date: 20050504
  Transmission Date: 20051028
  Serious: Yes (Hospitalization)
  Sender: FDA-Public Use
  Company Number: US-ROCHE-403904

PATIENT
  Age: 79 Year
  Sex: Female

DRUGS (11)
  1. CAPECITABINE [Suspect]
     Indication: COLON CANCER
     Dosage: TAKEN FOR FOURTEEN DAYS EVERY THREE WEEKS
     Route: 048
     Dates: start: 20050310, end: 20050311
  2. CETUXIMAB [Suspect]
     Indication: COLON CANCER
     Dosage: TAKEN OVER TWO HOURS WEEKLY; 2 MG/ML
     Route: 042
     Dates: start: 20050310, end: 20050310
  3. IRINOTECAN HCL [Suspect]
     Indication: COLON CANCER
     Dosage: ADMINISTERED AS IV PIGGY BACK EVERY THREE WEEKS; 20 MG/ML
     Route: 042
     Dates: start: 20050310, end: 20050311
  4. TOBRAMYCIN [Suspect]
     Indication: FEBRILE NEUTROPENIA
     Route: 065
  5. TOPROL-XL [Concomitant]
  6. AMIODARONE HCL [Concomitant]
  7. BUMEX [Concomitant]
  8. PRAVACHOL [Concomitant]
  9. POTASSIUM CHLORIDE [Concomitant]
  10. COUMADIN [Concomitant]
  11. IMDUR [Concomitant]

REACTIONS (5)
  - FEBRILE NEUTROPENIA [None]
  - INFUSION RELATED REACTION [None]
  - PANCYTOPENIA [None]
  - RENAL FAILURE [None]
  - SEPSIS [None]
